FAERS Safety Report 17238224 (Version 1)
Quarter: 2020Q1

REPORT INFORMATION
  Report Type: Spontaneous
  Country: US (occurrence: US)
  Receive Date: 20200106
  Receipt Date: 20200106
  Transmission Date: 20200409
  Serious: Yes (Other)
  Sender: FDA-Public Use
  Company Number: NVSC2020US000448

PATIENT
  Age: 68 Year
  Sex: Male

DRUGS (2)
  1. PREDNISONE. [Suspect]
     Active Substance: PREDNISONE
     Indication: POLYCHONDRITIS
     Dosage: UNK
     Route: 065
  2. INFLIXIMAB [Suspect]
     Active Substance: INFLIXIMAB
     Indication: POLYCHONDRITIS
     Dosage: UNK
     Route: 065

REACTIONS (6)
  - Night sweats [Unknown]
  - Pyrexia [Unknown]
  - Rash papular [Unknown]
  - Lupus-like syndrome [Unknown]
  - Hypotension [Unknown]
  - Product use in unapproved indication [Unknown]
